FAERS Safety Report 11971985 (Version 3)
Quarter: 2019Q1

REPORT INFORMATION
  Report Type: Spontaneous
  Country: US (occurrence: US)
  Receive Date: 20160128
  Receipt Date: 20190122
  Transmission Date: 20190417
  Serious: No
  Sender: FDA-Public Use
  Company Number: US-PFIZER INC-2016022210

PATIENT
  Sex: Female

DRUGS (9)
  1. ELAVIL [Suspect]
     Active Substance: AMITRIPTYLINE HYDROCHLORIDE
     Dosage: UNK
  2. WELLBUTRIN [Suspect]
     Active Substance: BUPROPION HYDROCHLORIDE
     Dosage: UNK
  3. GABAPENTIN. [Suspect]
     Active Substance: GABAPENTIN
     Dosage: UNK
  4. VENLAFAXINE HCL [Suspect]
     Active Substance: VENLAFAXINE HYDROCHLORIDE
     Dosage: UNK
  5. DESIPRAMINE HCL [Suspect]
     Active Substance: DESIPRAMINE HYDROCHLORIDE
     Dosage: UNK
  6. LORAZEPAM. [Suspect]
     Active Substance: LORAZEPAM
     Dosage: UNK
  7. PROCARDIA [Suspect]
     Active Substance: NIFEDIPINE
     Dosage: UNK
  8. OXYCODONE [Suspect]
     Active Substance: OXYCODONE
     Dosage: UNK
  9. CARISOPRODOL. [Suspect]
     Active Substance: CARISOPRODOL
     Dosage: UNK

REACTIONS (1)
  - Drug hypersensitivity [Not Recovered/Not Resolved]
